FAERS Safety Report 8117304-1 (Version None)
Quarter: 2012Q1

REPORT INFORMATION
  Report Type: 
  Country: None (occurrence: None)
  Receive Date: 20120206
  Receipt Date: 20120124
  Transmission Date: 20120608
  Serious: Yes (Hospitalization, Other)
  Sender: FDA-Public Use
  Company Number: US-ELI_LILLY_AND_COMPANY-US201112002935

PATIENT
  Sex: Male
  Weight: 117.1 kg

DRUGS (13)
  1. METFORMIN HCL [Concomitant]
     Indication: TYPE 2 DIABETES MELLITUS
     Dosage: 1500 MG, QD
     Route: 048
  2. GLIPIZIDE [Concomitant]
     Indication: TYPE 2 DIABETES MELLITUS
     Dosage: 0.5 DF, BID
     Route: 048
  3. SIMVASTATIN [Concomitant]
     Indication: BLOOD CHOLESTEROL
     Dosage: 40 MG, QD
     Route: 048
  4. FLOMAX [Concomitant]
     Indication: PROSTATIC DISORDER
     Dosage: 0.4 MG, QD
     Route: 048
  5. PLAVIX [Concomitant]
     Indication: PROPHYLAXIS
     Dosage: 75 MG, QD
     Route: 048
  6. PROSCAR [Concomitant]
     Indication: PROSTATIC DISORDER
     Dosage: 5 MG, QD
     Route: 048
  7. ALLOPURINOL [Concomitant]
     Indication: GOUT
     Dosage: 300 MG, QD
     Route: 048
  8. SOTALOL HCL [Concomitant]
     Indication: CARDIAC DISORDER
     Dosage: 120 MG, QD
     Route: 048
  9. NAPROXEN (ALEVE) [Concomitant]
     Indication: PAIN
     Dosage: UNK, PRN
     Route: 048
     Dates: end: 20110301
  10. BYETTA [Suspect]
     Indication: TYPE 2 DIABETES MELLITUS
     Dosage: 5 UG, BID
     Route: 058
     Dates: start: 20070201, end: 20070401
  11. FUROSEMIDE [Concomitant]
     Indication: DIURETIC THERAPY
     Dosage: UNK UNK, QD
     Route: 048
  12. HYZAAR [Concomitant]
     Dosage: 1 DF, QD
  13. BYETTA [Suspect]
     Dosage: 10 UG, BID
     Route: 058
     Dates: start: 20000204, end: 20080201

REACTIONS (4)
  - LOSS OF CONSCIOUSNESS [None]
  - RENAL FAILURE [None]
  - MALAISE [None]
  - WEIGHT DECREASED [None]
